FAERS Safety Report 21617276 (Version 1)
Quarter: 2022Q4

REPORT INFORMATION
  Report Type: Report from Study
  Country: US (occurrence: US)
  Receive Date: 20221118
  Receipt Date: 20221118
  Transmission Date: 20230113
  Serious: No
  Sender: FDA-Public Use
  Company Number: US-ABBVIE-4204422

PATIENT
  Sex: Female

DRUGS (12)
  1. VENCLEXTA [Suspect]
     Active Substance: VENETOCLAX
     Indication: Acute leukaemia
     Route: 048
     Dates: start: 20221114
  2. PROVENTIL HFA INHALATION AEROSOL SOLUTION [Concomitant]
     Indication: Product used for unknown indication
  3. Sertraline HCl Oral Tablet 100 MG [Concomitant]
     Indication: Product used for unknown indication
     Route: 048
  4. Pantoprazole Sodium Oral Tablet Del [Concomitant]
     Indication: Product used for unknown indication
     Route: 048
  5. HYDROcodone-Acetaminophen Oral [Concomitant]
     Indication: Product used for unknown indication
     Route: 048
  6. Acyclovir Oral Tablet 400 MG [Concomitant]
     Indication: Product used for unknown indication
     Route: 048
  7. Vidaza Injection Suspension Reconst [Concomitant]
     Indication: Product used for unknown indication
  8. Multivitamin Adults 50 Oral Tablet [Concomitant]
     Indication: Product used for unknown indication
     Route: 048
  9. ONDANSETRON HCL [Concomitant]
     Active Substance: ONDANSETRON HYDROCHLORIDE
     Indication: Product used for unknown indication
  10. ALLOPURINOL [Concomitant]
     Active Substance: ALLOPURINOL
     Indication: Product used for unknown indication
  11. Ambien CR Oral Tablet Extended Rele [Concomitant]
     Indication: Product used for unknown indication
     Route: 048
  12. LORAZEPAM [Concomitant]
     Active Substance: LORAZEPAM
     Indication: Product used for unknown indication

REACTIONS (1)
  - Nausea [Not Recovered/Not Resolved]
